FAERS Safety Report 9499917 (Version 1)
Quarter: 2013Q3

REPORT INFORMATION
  Report Type: Spontaneous
  Country: GB (occurrence: None)
  Receive Date: 20130903
  Receipt Date: 20130903
  Transmission Date: 20140515
  Serious: Yes (Other)
  Sender: FDA-Public Use
  Company Number: 2013GB0138

PATIENT
  Age: 81 Year
  Sex: Male

DRUGS (3)
  1. KINERET [Suspect]
     Indication: SCHNITZLER^S SYNDROME
     Route: 058
     Dates: start: 20091201, end: 20100119
  2. PREDNISOLONE(PREDNISOLONE) [Concomitant]
  3. AMIODARONE(AMIODARONE) [Concomitant]

REACTIONS (7)
  - Hepatic function abnormal [None]
  - Decreased appetite [None]
  - Weight decreased [None]
  - Lethargy [None]
  - Malaise [None]
  - Alanine aminotransferase increased [None]
  - Blood alkaline phosphatase increased [None]
